FAERS Safety Report 8417920-3 (Version None)
Quarter: 2012Q2

REPORT INFORMATION
  Report Type: 
  Country: None (occurrence: None)
  Receive Date: 20120601
  Receipt Date: 20120601
  Transmission Date: 20120825
  Serious: Yes (Other)
  Sender: FDA-Public Use
  Company Number: None

PATIENT
  Age: 75 Year
  Sex: Female
  Weight: 77.1115 kg

DRUGS (1)
  1. CALCIUM CARBONATE [Suspect]
     Indication: OSTEOPOROSIS PROPHYLAXIS
     Dosage: ONE TABLET ONCLY ONCE BY MOUTH
     Route: 048
     Dates: start: 20120421

REACTIONS (2)
  - DYSPNOEA [None]
  - HEADACHE [None]
